FAERS Safety Report 8016303-8 (Version None)
Quarter: 2011Q4

REPORT INFORMATION
  Report Type: 
  Country: None (occurrence: None)
  Receive Date: 20111228
  Receipt Date: 20111228
  Transmission Date: 20120403
  Serious: Yes (Life-Threatening)
  Sender: FDA-Public Use
  Company Number: None

PATIENT
  Age: 50 Year
  Sex: Male

DRUGS (2)
  1. TAMSULOSIN HCL [Suspect]
     Indication: PROSTATOMEGALY
     Dosage: ONE A DAY
     Dates: start: 20110401, end: 20110601
  2. VIAGRA [Concomitant]

REACTIONS (2)
  - SEXUAL DYSFUNCTION [None]
  - ERECTILE DYSFUNCTION [None]
